FAERS Safety Report 6086178-5 (Version None)
Quarter: 2009Q1

REPORT INFORMATION
  Report Type: 
  Country: None (occurrence: None)
  Receive Date: 20090217
  Receipt Date: 20090217
  Transmission Date: 20090719
  Serious: Yes (Disabling, Other)
  Sender: FDA-Public Use
  Company Number: None

PATIENT
  Age: 43 Year
  Sex: Female
  Weight: 62.1428 kg

DRUGS (1)
  1. CHANTIX [Suspect]
     Indication: SMOKING CESSATION THERAPY
     Dosage: 1.0 MG BID PO
     Route: 048
     Dates: start: 20090117, end: 20090212

REACTIONS (7)
  - ABNORMAL DREAMS [None]
  - EPISTAXIS [None]
  - EYE HAEMORRHAGE [None]
  - HEADACHE [None]
  - NERVOUS SYSTEM DISORDER [None]
  - PARAESTHESIA [None]
  - RESTLESSNESS [None]
